FAERS Safety Report 15796100 (Version 1)
Quarter: 2019Q1

REPORT INFORMATION
  Report Type: Spontaneous
  Country: US (occurrence: US)
  Receive Date: 20190108
  Receipt Date: 20190108
  Transmission Date: 20190417
  Serious: No
  Sender: FDA-Public Use
  Company Number: US-ASTRAZENECA-2018SE47523

PATIENT
  Age: 27449 Day
  Sex: Female

DRUGS (1)
  1. TUDORZA PRESSAIR [Suspect]
     Active Substance: ACLIDINIUM BROMIDE
     Dosage: 400.0UG UNKNOWN
     Route: 055

REACTIONS (5)
  - Wrong technique in device usage process [Unknown]
  - Malaise [Unknown]
  - Product dose omission [Unknown]
  - Dysgeusia [Unknown]
  - Product residue present [Unknown]

NARRATIVE: CASE EVENT DATE: 20180409
